FAERS Safety Report 9440509 (Version 1)
Quarter: 2013Q3

REPORT INFORMATION
  Report Type: Spontaneous
  Country: IN (occurrence: IN)
  Receive Date: 20130805
  Receipt Date: 20130805
  Transmission Date: 20140515
  Serious: Yes (Other)
  Sender: FDA-Public Use
  Company Number: IN-MYLANLABS-2013S1016532

PATIENT
  Age: 4 Year
  Sex: Male

DRUGS (4)
  1. METHOTREXATE [Suspect]
     Indication: B PRECURSOR TYPE ACUTE LEUKAEMIA
     Dosage: 12 DOSES OF 12MG IN INDUCTION PHASE OF MCP-841 PROTOCOL; THEN RECEIVED IN MAINTENANCE PHASE
     Route: 037
  2. METHOTREXATE [Suspect]
     Indication: B PRECURSOR TYPE ACUTE LEUKAEMIA
     Dosage: MAINTENANCE PHASE OF MCP-841 PROTOCOL
     Route: 037
  3. MERCAPTOPURINE [Concomitant]
     Indication: B PRECURSOR TYPE ACUTE LEUKAEMIA
     Dosage: DAILY; MAINTENANCE PHASE OF MCP-841 PROTOCOL
     Route: 048
  4. VINCRISTINE [Concomitant]
     Indication: B PRECURSOR TYPE ACUTE LEUKAEMIA
     Dosage: MAINTENANCE PHASE OF MCP-841 PROTOCOL
     Route: 042

REACTIONS (3)
  - Leukoencephalopathy [Recovering/Resolving]
  - Aphasia [Recovered/Resolved]
  - Apathy [Recovering/Resolving]
